FAERS Safety Report 22935869 (Version 2)
Quarter: 2023Q4

REPORT INFORMATION
  Report Type: Spontaneous
  Country: GB (occurrence: None)
  Receive Date: 20230912
  Receipt Date: 20231102
  Transmission Date: 20240110
  Serious: Yes (Death, Hospitalization, Other)
  Sender: FDA-Public Use
  Company Number: GB-ROCHE-3418738

PATIENT
  Sex: Male

DRUGS (1)
  1. TOCILIZUMAB [Suspect]
     Active Substance: TOCILIZUMAB
     Indication: Giant cell arteritis
     Dosage: PATIENT LAST SELF INJECTED AT THE END OF MAY 2023
     Route: 058

REACTIONS (6)
  - Ill-defined disorder [Unknown]
  - Leg amputation [Unknown]
  - Fall [Unknown]
  - Chest injury [Unknown]
  - Pneumonia [Unknown]
  - Death [Fatal]
